FAERS Safety Report 21298608 (Version 1)
Quarter: 2022Q3

REPORT INFORMATION
  Report Type: Spontaneous
  Country: US (occurrence: None)
  Receive Date: 20220904
  Receipt Date: 20220904
  Transmission Date: 20221027
  Serious: Yes (Other)
  Sender: FDA-Public Use
  Company Number: None

PATIENT
  Sex: Female

DRUGS (1)
  1. CELECOXIB [Suspect]
     Active Substance: CELECOXIB
     Dates: start: 20220712, end: 20220712

REACTIONS (4)
  - Swelling face [None]
  - Swollen tongue [None]
  - Lip swelling [None]
  - Dyspnoea [None]
